FAERS Safety Report 8716300 (Version 2)
Quarter: 2013Q4

REPORT INFORMATION
  Report Type: Spontaneous
  Country: GB (occurrence: GB)
  Receive Date: 20120810
  Receipt Date: 20131031
  Transmission Date: 20140711
  Serious: Yes (Disabling, Other)
  Sender: FDA-Public Use
  Company Number: GB-009507513-1208GBR002317

PATIENT
  Age: 72 Year
  Sex: Female
  Weight: 71.66 kg

DRUGS (7)
  1. ZOCOR [Suspect]
     Indication: HYPERCHOLESTEROLAEMIA
     Dosage: 40 MG, UNK
     Route: 048
     Dates: start: 20070201, end: 20120501
  2. ATORVASTATIN [Suspect]
     Dosage: 40 MG, UNK
     Route: 048
  3. AMLODIPINE [Concomitant]
  4. ASPIRIN [Concomitant]
  5. BENDROFLUMETHIAZIDE [Concomitant]
  6. PERINDOPRIL TERT-BUTYLAMINE RATIOPHARM [Concomitant]
  7. PERSANTIN RETARD [Concomitant]

REACTIONS (3)
  - Pain in extremity [Recovered/Resolved with Sequelae]
  - Arthritis [Unknown]
  - Amnesia [Unknown]
